FAERS Safety Report 15798555 (Version 1)
Quarter: 2019Q1

REPORT INFORMATION
  Report Type: Spontaneous
  Country: SE (occurrence: SE)
  Receive Date: 20190108
  Receipt Date: 20190108
  Transmission Date: 20190417
  Serious: Yes (Other)
  Sender: FDA-Public Use
  Company Number: SE-SA-2019SA003219

PATIENT
  Age: 72 Year
  Sex: Male
  Weight: 66 kg

DRUGS (7)
  1. FELODIPIN [Concomitant]
     Active Substance: FELODIPINE
     Dosage: 10 MG, QD
     Route: 065
  2. SUTENT [Suspect]
     Active Substance: SUNITINIB MALATE
     Dosage: 37.5 MG, UNK
     Route: 048
  3. SUTENT [Suspect]
     Active Substance: SUNITINIB MALATE
     Dosage: 50 MG, QCY
     Route: 048
     Dates: start: 201510, end: 20160412
  4. LEVAXIN [Concomitant]
     Active Substance: LEVOTHYROXINE SODIUM
     Dosage: 25 UG, 1X/DAY
     Dates: start: 201602
  5. SUTENT [Suspect]
     Active Substance: SUNITINIB MALATE
     Indication: METASTATIC RENAL CELL CARCINOMA
     Dosage: 50 MG, QCY
     Route: 048
     Dates: start: 20150513
  6. KLEXANE [Suspect]
     Active Substance: ENOXAPARIN
     Indication: PULMONARY EMBOLISM
     Dosage: 0.6 ML, QD
     Route: 065
     Dates: start: 201504
  7. FURIX [Concomitant]
     Active Substance: FUROSEMIDE
     Dosage: 20 MG, 1X/DAY
     Route: 065

REACTIONS (4)
  - Epistaxis [Recovered/Resolved]
  - Haemoglobin decreased [Unknown]
  - Disease progression [Unknown]
  - Metastatic renal cell carcinoma [Unknown]

NARRATIVE: CASE EVENT DATE: 201510
